FAERS Safety Report 6112969-8 (Version None)
Quarter: 2009Q1

REPORT INFORMATION
  Report Type: 
  Country: None (occurrence: None)
  Receive Date: 20090312
  Receipt Date: 20090304
  Transmission Date: 20090719
  Serious: Yes (Congenital Anomaly)
  Sender: FDA-Public Use
  Company Number: A0122685A

PATIENT
  Sex: Female
  Weight: 4.1 kg

DRUGS (4)
  1. LAMICTAL [Suspect]
     Indication: EPILEPSY
     Dosage: 100MG SEE DOSAGE TEXT
  2. TEGRETOL [Concomitant]
     Indication: EPILEPSY
     Route: 065
  3. DIAMOX [Concomitant]
     Indication: EPILEPSY
     Dosage: 375MG PER DAY
     Route: 065
  4. FOLIC ACID [Concomitant]

REACTIONS (2)
  - BRANCHIAL CLEFT CYST [None]
  - DRUG EXPOSURE DURING PREGNANCY [None]
